FAERS Safety Report 20959085 (Version 2)
Quarter: 2022Q3

REPORT INFORMATION
  Report Type: Spontaneous
  Country: JP (occurrence: JP)
  Receive Date: 20220614
  Receipt Date: 20220702
  Transmission Date: 20221026
  Serious: Yes (Hospitalization)
  Sender: FDA-Public Use
  Company Number: JP-TEVA-2022-JP-2045530

PATIENT
  Age: 60 Year
  Sex: Female

DRUGS (4)
  1. WARFARIN [Suspect]
     Active Substance: WARFARIN
     Indication: Anticoagulant therapy
     Route: 065
  2. PREDNISOLONE [Concomitant]
     Active Substance: PREDNISOLONE
     Indication: Glomerulonephritis membranoproliferative
     Dosage: .5 MILLIGRAM DAILY;
     Route: 048
  3. PREDNISOLONE [Concomitant]
     Active Substance: PREDNISOLONE
     Indication: Takayasu^s arteritis
  4. MEROPENEM [Concomitant]
     Active Substance: MEROPENEM
     Indication: Enteritis infectious
     Dosage: 5 MILLIGRAM DAILY; SCHEDULED TO BE ADMINISTERED FOR 14 DAYS
     Route: 048

REACTIONS (1)
  - Haematochezia [Unknown]
